FAERS Safety Report 11737218 (Version 1)
Quarter: 2015Q4

REPORT INFORMATION
  Report Type: Spontaneous
  Country: US (occurrence: None)
  Receive Date: 20151112
  Receipt Date: 20151112
  Transmission Date: 20160304
  Serious: No
  Sender: FDA-Public Use
  Company Number: None

PATIENT
  Age: 71 Year
  Sex: Male
  Weight: 99.79 kg

DRUGS (15)
  1. OMEPRAZOLE. [Concomitant]
     Active Substance: OMEPRAZOLE
  2. ADULT VITAMIN [Concomitant]
  3. CA/MG [Concomitant]
  4. LANTUS [Concomitant]
     Active Substance: INSULIN GLARGINE
  5. COQ 10 [Concomitant]
     Active Substance: UBIDECARENONE
  6. FISH OIL [Concomitant]
     Active Substance: FISH OIL
  7. CARDELILOL [Concomitant]
  8. METFORMIN [Concomitant]
     Active Substance: METFORMIN HYDROCHLORIDE
  9. VITAMIN D3 [Concomitant]
     Active Substance: CHOLECALCIFEROL
  10. INVOKANA [Suspect]
     Active Substance: CANAGLIFLOZIN
     Indication: TYPE 2 DIABETES MELLITUS
     Dosage: 1 PILL ONCE DAILY TAKEN BY MOUTH
     Route: 048
     Dates: start: 20150911, end: 20151104
  11. BYDUREON [Concomitant]
     Active Substance: EXENATIDE
  12. LOSARTAN. [Concomitant]
     Active Substance: LOSARTAN
  13. VITAMIN C [Concomitant]
     Active Substance: ASCORBIC ACID
  14. ALPHA LIPOIC ACID [Concomitant]
     Active Substance: .ALPHA.-LIPOIC ACID
  15. TAMSULOSIN [Concomitant]
     Active Substance: TAMSULOSIN

REACTIONS (9)
  - Headache [None]
  - Pain [None]
  - Groin pain [None]
  - Prostatitis [None]
  - Proctalgia [None]
  - Malaise [None]
  - Urinary tract discomfort [None]
  - Pollakiuria [None]
  - Pyrexia [None]

NARRATIVE: CASE EVENT DATE: 20151108
